FAERS Safety Report 12897549 (Version 1)
Quarter: 2016Q4

REPORT INFORMATION
  Report Type: Report from Study
  Country: GR (occurrence: GR)
  Receive Date: 20161031
  Receipt Date: 20161031
  Transmission Date: 20170207
  Serious: Yes (Life-Threatening, Hospitalization)
  Sender: FDA-Public Use
  Company Number: GR-INCYTE CORPORATION-2016IN006663

PATIENT
  Age: 74 Year
  Sex: Female
  Weight: 65 kg

DRUGS (1)
  1. JAKAVI [Suspect]
     Active Substance: RUXOLITINIB
     Indication: MYELOFIBROSIS
     Dosage: 30 MG, QD
     Route: 048
     Dates: start: 20160129, end: 20160802

REACTIONS (2)
  - Upper respiratory tract infection [Recovering/Resolving]
  - Neutropenia [Recovering/Resolving]

NARRATIVE: CASE EVENT DATE: 20160802
